FAERS Safety Report 9473454 (Version 1)
Quarter: 2013Q3

REPORT INFORMATION
  Report Type: Spontaneous
  Country: US (occurrence: US)
  Receive Date: 20130823
  Receipt Date: 20130823
  Transmission Date: 20140515
  Serious: No
  Sender: FDA-Public Use
  Company Number: US-BRISTOL-MYERS SQUIBB COMPANY-19004712

PATIENT
  Age: 59 Year
  Sex: Male
  Weight: 88 kg

DRUGS (4)
  1. SPRYCEL [Suspect]
     Dosage: TABS
     Route: 048
  2. ACYCLOVIR [Concomitant]
     Dosage: FORMULATION: ACYCLOVIR NA SOLN 500MG/20
  3. BACTRIM DS [Concomitant]
     Dosage: BACTRIM DS TAB 800-160
  4. LEVOTHYROXINE [Concomitant]
     Dosage: LEVOTHYROXINE INJECTION 500 MCG

REACTIONS (2)
  - Joint swelling [Unknown]
  - Cough [Unknown]
